FAERS Safety Report 7731148-1 (Version None)
Quarter: 2011Q3

REPORT INFORMATION
  Report Type: 
  Country: None (occurrence: None)
  Receive Date: 20110906
  Receipt Date: 20110906
  Transmission Date: 20111222
  Serious: Yes (Life-Threatening, Hospitalization)
  Sender: FDA-Public Use
  Company Number: None

PATIENT
  Age: 68 Year
  Sex: Female
  Weight: 81.193 kg

DRUGS (1)
  1. ALENDRONATE SODIUM [Suspect]
     Indication: OSTEOPENIA
     Dosage: WEEKLY
     Dates: start: 19850101, end: 20110725

REACTIONS (5)
  - HIP FRACTURE [None]
  - CONCUSSION [None]
  - FALL [None]
  - URINARY TRACT INFECTION [None]
  - PNEUMONIA [None]
